FAERS Safety Report 5248170-X (Version None)
Quarter: 2007Q1

REPORT INFORMATION
  Report Type: 
  Country: None (occurrence: None)
  Receive Date: 20070227
  Receipt Date: 20060426
  Transmission Date: 20070707
  Serious: Yes (Other)
  Sender: FDA-Public Use
  Company Number: US-BRISTOL-MYERS SQUIBB COMPANY-13357470

PATIENT
  Age: 48 Year
  Sex: Male
  Weight: 104 kg

DRUGS (5)
  1. GLUCOPHAGE [Suspect]
     Indication: DIABETES MELLITUS
     Dates: start: 19960101
  2. DIOVAN [Concomitant]
  3. GLIPIZIDE [Concomitant]
     Indication: DIABETES MELLITUS
     Dates: start: 20051201
  4. BYETTA [Concomitant]
     Indication: DIABETES MELLITUS
     Dates: start: 20060101
  5. HUMULIN 70/30 [Concomitant]
     Indication: DIABETES MELLITUS

REACTIONS (3)
  - BLOOD GLUCOSE INCREASED [None]
  - ERYTHEMA [None]
  - PAIN IN EXTREMITY [None]
